FAERS Safety Report 12209210 (Version 3)
Quarter: 2016Q2

REPORT INFORMATION
  Report Type: Spontaneous
  Country: DE (occurrence: DE)
  Receive Date: 20160324
  Receipt Date: 20160609
  Transmission Date: 20160815
  Serious: Yes (Hospitalization, Other)
  Sender: FDA-Public Use
  Company Number: DE-B.I. PHARMACEUTICALS,INC./RIDGEFIELD-2016-BI-18434DE

PATIENT
  Age: 82 Year
  Sex: Female

DRUGS (1)
  1. PRADAXA [Suspect]
     Active Substance: DABIGATRAN ETEXILATE MESYLATE
     Indication: PRODUCT USED FOR UNKNOWN INDICATION
     Route: 065

REACTIONS (8)
  - Hormone level abnormal [Unknown]
  - Hypoglycaemia [Recovered/Resolved]
  - Insulinoma [Unknown]
  - Blood glucagon abnormal [Unknown]
  - Disorientation [Unknown]
  - Pancreatic disorder [Unknown]
  - Aggression [Unknown]
  - Bradycardia [Unknown]
